FAERS Safety Report 10310981 (Version 1)
Quarter: 2014Q3

REPORT INFORMATION
  Report Type: Spontaneous
  Country: CA (occurrence: None)
  Receive Date: 20140715
  Receipt Date: 20140715
  Transmission Date: 20150326
  Serious: Yes (Other)
  Sender: FDA-Public Use
  Company Number: 2013-000414

PATIENT
  Age: 67 Year
  Sex: Female

DRUGS (5)
  1. VALIUM [Concomitant]
     Active Substance: DIAZEPAM
  2. NORVASC [Concomitant]
     Active Substance: AMLODIPINE BESYLATE
  3. ACTONEL [Suspect]
     Active Substance: RISEDRONATE SODIUM
     Indication: OSTEOPOROSIS
     Dosage: 150 MG ONCE MONTHLY, ORAL
     Route: 048
     Dates: start: 20110407
  4. LIPITOR [Suspect]
     Active Substance: ATORVASTATIN CALCIUM
  5. ARIMIDEX [Concomitant]
     Active Substance: ANASTROZOLE

REACTIONS (7)
  - Osteopenia [None]
  - Atypical fracture [None]
  - Comminuted fracture [None]
  - Bone lesion [None]
  - Pathological fracture [None]
  - Pubis fracture [None]
  - Haematoma [None]

NARRATIVE: CASE EVENT DATE: 201212
